FAERS Safety Report 9756679 (Version 1)
Quarter: 2013Q4

REPORT INFORMATION
  Report Type: Spontaneous
  Country: US (occurrence: US)
  Receive Date: 20131213
  Receipt Date: 20131213
  Transmission Date: 20140711
  Serious: Yes (Other)
  Sender: FDA-Public Use
  Company Number: US-ACTAVIS-2013-22320

PATIENT
  Age: 2 Month
  Sex: 0

DRUGS (2)
  1. PROPRANOLOL (WATSON LABORATORIES) [Suspect]
     Indication: HAEMANGIOMA CONGENITAL
     Dosage: 1.6 MG/KG, DAILY
     Route: 048
  2. PROPRANOLOL (WATSON LABORATORIES) [Suspect]
     Indication: OFF LABEL USE

REACTIONS (2)
  - Sleep terror [Unknown]
  - Off label use [Unknown]
